FAERS Safety Report 8835892 (Version 1)
Quarter: 2012Q4

REPORT INFORMATION
  Report Type: 
  Country: US (occurrence: US)
  Receive Date: 20121011
  Receipt Date: 20121011
  Transmission Date: 20130627
  Serious: Yes (Other)
  Sender: FDA-Public Use
  Company Number: US-PERRIGO-12US008732

PATIENT
  Age: 2 Year
  Sex: Male
  Weight: 18.14 kg

DRUGS (1)
  1. ACETAMINOPHEN [Suspect]
     Indication: ACCIDENTAL EXPOSURE TO PRODUCT
     Dosage: approximately 118 mL, 3776 mg, single
     Route: 048
     Dates: start: 20121001, end: 20121001

REACTIONS (2)
  - Accidental overdose [Recovered/Resolved]
  - Somnolence [Recovered/Resolved]
